FAERS Safety Report 6827005-5 (Version None)
Quarter: 2010Q3

REPORT INFORMATION
  Report Type: 
  Country: None (occurrence: None)
  Receive Date: 20100709
  Receipt Date: 20100628
  Transmission Date: 20110219
  Serious: Yes (Other)
  Sender: FDA-Public Use
  Company Number: US-PFIZER INC-2010080398

PATIENT
  Sex: Female
  Weight: 53.968 kg

DRUGS (1)
  1. XALATAN [Suspect]
     Indication: GLAUCOMA
     Dosage: 1 DROP IN EACH EYE DAILY
     Route: 047

REACTIONS (6)
  - BLOOD PRESSURE ABNORMAL [None]
  - CONJUNCTIVITIS [None]
  - DRY EYE [None]
  - EYE DISORDER [None]
  - HYPOTHYROIDISM [None]
  - OSTEOPOROSIS [None]
